FAERS Safety Report 16910607 (Version 3)
Quarter: 2024Q4

REPORT INFORMATION
  Report Type: Spontaneous
  Country: US (occurrence: US)
  Receive Date: 20191011
  Receipt Date: 20241112
  Transmission Date: 20250114
  Serious: Yes (Hospitalization, Other)
  Sender: GLENMARK
  Company Number: US-MLMSERVICE-20191001-1979313-1

PATIENT

DRUGS (13)
  1. TACROLIMUS [Interacting]
     Active Substance: TACROLIMUS
     Indication: Immunosuppressant drug therapy
     Dosage: 1 MG, BID; TARGET TROUGH LEVEL OF 10-12 MG/DL
     Route: 065
     Dates: start: 201512, end: 2016
  2. TACROLIMUS [Interacting]
     Active Substance: TACROLIMUS
     Dosage: 17 MG, BID; TAC TROUGH LEVEL WAS REDUCED TO 6-7 NG/DL
     Route: 065
     Dates: start: 2016, end: 2016
  3. TACROLIMUS [Interacting]
     Active Substance: TACROLIMUS
     Dosage: 13 MG, BID
     Route: 065
     Dates: start: 2016, end: 2016
  4. TACROLIMUS [Interacting]
     Active Substance: TACROLIMUS
     Dosage: TARGET THE GOAL TROUGH OF 8-10 MG/DL
     Route: 065
     Dates: end: 2016
  5. TACROLIMUS [Interacting]
     Active Substance: TACROLIMUS
     Dosage: 17 MG, BID
     Route: 065
     Dates: start: 2016, end: 2016
  6. SULFAMETHOXAZOLE\TRIMETHOPRIM [Suspect]
     Active Substance: SULFAMETHOXAZOLE\TRIMETHOPRIM
     Indication: Antifungal prophylaxis
     Dosage: 1 DF, OD
     Route: 065
     Dates: start: 201512, end: 2016
  7. SULFAMETHOXAZOLE\TRIMETHOPRIM [Suspect]
     Active Substance: SULFAMETHOXAZOLE\TRIMETHOPRIM
     Dosage: UNK
     Route: 065
  8. VALGANCICLOVIR [Interacting]
     Active Substance: VALGANCICLOVIR
     Indication: Antiviral prophylaxis
     Dosage: 450 MG, EVERY 48 HOURS
     Route: 065
     Dates: start: 201512, end: 2016
  9. MYCOPHENOLATE MOFETIL [Interacting]
     Active Substance: MYCOPHENOLATE MOFETIL
     Indication: Immunosuppressant drug therapy
     Dosage: 1 G, BID
     Route: 048
     Dates: start: 201512, end: 2016
  10. MYCOPHENOLATE MOFETIL [Interacting]
     Active Substance: MYCOPHENOLATE MOFETIL
     Dosage: 500 MG, BID
     Route: 048
     Dates: start: 2016, end: 2016
  11. THYMOCYTE IMMUNE GLOBULIN NOS [Suspect]
     Active Substance: THYMOCYTE IMMUNE GLOBULIN NOS
     Indication: Immunosuppressant drug therapy
     Dosage: 3 DF IN TOTAL; 3 DOSES OF 100 MG (1.5 MG/KG)
     Route: 042
     Dates: start: 201512
  12. PREDNISONE [Concomitant]
     Active Substance: PREDNISONE
     Indication: Immunosuppressant drug therapy
     Dosage: UNK; CONTINUED TO BE TAPERED
     Route: 065
     Dates: start: 201512, end: 2016
  13. PREDNISONE [Concomitant]
     Active Substance: PREDNISONE
     Dosage: 5 MG, OD
     Route: 065
     Dates: start: 2016, end: 2016

REACTIONS (6)
  - Myelosuppression [Recovered/Resolved]
  - Drug interaction [Recovered/Resolved]
  - Myelosuppression [Recovered/Resolved]
  - Tremor [Unknown]
  - Hyperkalaemia [Unknown]
  - Neutropenia [Recovered/Resolved]

NARRATIVE: CASE EVENT DATE: 20160101
